FAERS Safety Report 25749932 (Version 1)
Quarter: 2025Q3

REPORT INFORMATION
  Report Type: Spontaneous
  Country: US (occurrence: US)
  Receive Date: 20250902
  Receipt Date: 20250902
  Transmission Date: 20251021
  Serious: No
  Sender: STALLERGENES
  Company Number: US-STALCOR-2025-AER-02290

PATIENT
  Age: 19 Year
  Sex: Male

DRUGS (3)
  1. PALFORZIA [Suspect]
     Active Substance: PEANUT
     Indication: Food allergy
     Dosage: 300MG MAINTENANCE DOSE DISPENSED ON 10-APR-2025
     Route: 048
  2. AUVI-Q [Concomitant]
     Active Substance: EPINEPHRINE
     Indication: Prophylaxis
  3. VITAMINS [Concomitant]
     Active Substance: VITAMINS
     Indication: Product used for unknown indication

REACTIONS (2)
  - Seasonal allergy [Unknown]
  - Product dose omission issue [Unknown]
